FAERS Safety Report 19680279 (Version 1)
Quarter: 2021Q3

REPORT INFORMATION
  Report Type: Spontaneous
  Country: IT (occurrence: IT)
  Receive Date: 20210810
  Receipt Date: 20210810
  Transmission Date: 20211014
  Serious: Yes (Hospitalization)
  Sender: FDA-Public Use
  Company Number: IT-ASTRAZENECA-2021A657595

PATIENT
  Age: 49 Year
  Sex: Female

DRUGS (3)
  1. GABAPENTIN. [Suspect]
     Active Substance: GABAPENTIN
     Indication: DRUG ABUSE
     Dosage: UNKNOWN
     Route: 065
     Dates: start: 20210411, end: 20210411
  2. QUETIAPINE. [Suspect]
     Active Substance: QUETIAPINE
     Indication: DRUG ABUSE
     Dosage: 60.0DF ONCE/SINGLE ADMINISTRATION
     Route: 048
     Dates: start: 20210411, end: 20210411
  3. LITHIUM. [Suspect]
     Active Substance: LITHIUM
     Indication: DRUG ABUSE
     Dosage: UNKNOWN
     Route: 065
     Dates: start: 20210411, end: 20210411

REACTIONS (3)
  - Poisoning [Not Recovered/Not Resolved]
  - Speech disorder [Not Recovered/Not Resolved]
  - Sedation [Not Recovered/Not Resolved]

NARRATIVE: CASE EVENT DATE: 20210411
